FAERS Safety Report 4276512-0 (Version None)
Quarter: 2004Q1

REPORT INFORMATION
  Report Type: 
  Country: None (occurrence: None)
  Receive Date: 20040120
  Receipt Date: 20040105
  Transmission Date: 20041129
  Serious: Yes (Other)
  Sender: FDA-Public Use
  Company Number: 200312204

PATIENT
  Age: 81 Year
  Sex: Male

DRUGS (4)
  1. ZYMAR [Suspect]
     Indication: CONJUNCTIVITIS BACTERIAL
     Dosage: 3 DROP TID EYE
     Route: 047
     Dates: start: 20030814, end: 20030818
  2. VIGAMOX [Concomitant]
  3. MURO [Concomitant]
  4. AVELOX [Concomitant]

REACTIONS (5)
  - AGGRESSION [None]
  - BETA HAEMOLYTIC STREPTOCOCCAL INFECTION [None]
  - CORNEAL PERFORATION [None]
  - CORNEAL SCAR [None]
  - EYE PAIN [None]
